FAERS Safety Report 8129809-8 (Version None)
Quarter: 2012Q1

REPORT INFORMATION
  Report Type: 
  Country: None (occurrence: None)
  Receive Date: 20120210
  Receipt Date: 20120210
  Transmission Date: 20120608
  Serious: No
  Sender: FDA-Public Use
  Company Number: None

PATIENT
  Age: 43 Year
  Sex: Female
  Weight: 86.182 kg

DRUGS (2)
  1. DEXTRO AMPHETAMINE SULFATE TAB [Suspect]
     Indication: CATAPLEXY
     Dosage: 30MG
     Route: 048
  2. DEXTRO AMPHETAMINE SULFATE TAB [Suspect]
     Indication: NARCOLEPSY
     Dosage: 30MG
     Route: 048

REACTIONS (3)
  - DRUG INEFFECTIVE [None]
  - PRODUCT SUBSTITUTION ISSUE [None]
  - QUALITY OF LIFE DECREASED [None]
